FAERS Safety Report 19090210 (Version 2)
Quarter: 2021Q2

REPORT INFORMATION
  Report Type: Spontaneous
  Country: US (occurrence: US)
  Receive Date: 20210404
  Receipt Date: 20210528
  Transmission Date: 20210717
  Serious: No
  Sender: FDA-Public Use
  Company Number: US-JNJFOC-20210344067

PATIENT
  Age: 26 Year
  Sex: Female
  Weight: 54.48 kg

DRUGS (7)
  1. TEMAZEPAM. [Concomitant]
     Active Substance: TEMAZEPAM
  2. SPRAVATO [Suspect]
     Active Substance: ESKETAMINE
     Indication: DEPRESSION
     Route: 045
     Dates: start: 20210319, end: 20210323
  3. LORAZEPAM. [Concomitant]
     Active Substance: LORAZEPAM
  4. FAMOTIDINE. [Concomitant]
     Active Substance: FAMOTIDINE
  5. LAMOTRIGINE. [Concomitant]
     Active Substance: LAMOTRIGINE
  6. DIMENHYDRINATE. [Concomitant]
     Active Substance: DIMENHYDRINATE
  7. METOPROLOL. [Concomitant]
     Active Substance: METOPROLOL

REACTIONS (1)
  - Rash [Not Recovered/Not Resolved]

NARRATIVE: CASE EVENT DATE: 20210321
